FAERS Safety Report 13984545 (Version 3)
Quarter: 2017Q4

REPORT INFORMATION
  Report Type: Spontaneous
  Country: FR (occurrence: FR)
  Receive Date: 20170918
  Receipt Date: 20171120
  Transmission Date: 20180321
  Serious: Yes (Other)
  Sender: FDA-Public Use
  Company Number: FR-PFIZER INC-2017398077

PATIENT
  Age: 68 Year
  Sex: Male

DRUGS (36)
  1. TIENAM [Suspect]
     Active Substance: CILASTATIN SODIUM\IMIPENEM
     Dosage: UNK
     Route: 042
     Dates: start: 20170818, end: 20170820
  2. MYCAMINE [Concomitant]
     Active Substance: MICAFUNGIN SODIUM
     Dosage: UNK
     Dates: start: 20170725, end: 20170726
  3. INEXIUM /01479302/ [Concomitant]
     Active Substance: ESOMEPRAZOLE MAGNESIUM
     Dosage: UNK
     Dates: start: 20170716, end: 20170719
  4. INEXIUM /01479302/ [Concomitant]
     Active Substance: ESOMEPRAZOLE MAGNESIUM
     Dosage: UNK
     Dates: start: 20170820, end: 20170820
  5. PARACETAMOL [Concomitant]
     Active Substance: ACETAMINOPHEN
     Dosage: UNK
     Dates: start: 20170716, end: 20170730
  6. ZYVOXID [Suspect]
     Active Substance: LINEZOLID
     Indication: PERITONITIS
     Dosage: 600 MG, 2X/DAY
     Route: 042
     Dates: start: 20170809, end: 20170815
  7. CEFTRIAXONE. [Concomitant]
     Active Substance: CEFTRIAXONE
     Dosage: UNK
     Dates: start: 20170716, end: 20170723
  8. TRIFLUCAN [Concomitant]
     Active Substance: FLUCONAZOLE
     Indication: PERITONITIS
     Dosage: 400 MG, DAILY
     Route: 042
     Dates: start: 20170726, end: 20170808
  9. TRIFLUCAN [Concomitant]
     Active Substance: FLUCONAZOLE
     Dosage: UNK
     Route: 042
     Dates: start: 20170814, end: 20170815
  10. TRIFLUCAN [Concomitant]
     Active Substance: FLUCONAZOLE
     Dosage: UNK
     Route: 042
     Dates: start: 20170818, end: 20170828
  11. PARACETAMOL [Concomitant]
     Active Substance: ACETAMINOPHEN
     Dosage: UNK UNK, AS NEEDED
  12. HEPARINE /00027701/ [Concomitant]
     Active Substance: HEPARIN SODIUM
     Dosage: UNK
  13. BISOCE [Concomitant]
     Active Substance: BISOPROLOL
     Dosage: UNK
     Dates: start: 20170816, end: 20170817
  14. METRONIDAZOLE. [Concomitant]
     Active Substance: METRONIDAZOLE
     Dosage: 500 MG, 3X/DAY
     Route: 042
     Dates: start: 20170726, end: 20170729
  15. PARACETAMOL [Concomitant]
     Active Substance: ACETAMINOPHEN
     Dosage: UNK
     Dates: start: 20170818
  16. INSULIN [Concomitant]
     Active Substance: INSULIN NOS
     Dosage: UNK
  17. URAPIDIL [Concomitant]
     Active Substance: URAPIDIL
     Dosage: UNK
     Dates: start: 20170816, end: 20170817
  18. TIENAM [Suspect]
     Active Substance: CILASTATIN SODIUM\IMIPENEM
     Dosage: UNK
     Route: 042
     Dates: start: 20170809, end: 20170815
  19. INEXIUM /01479302/ [Concomitant]
     Active Substance: ESOMEPRAZOLE MAGNESIUM
     Dosage: UNK
     Dates: start: 20170723, end: 20170726
  20. URAPIDIL [Concomitant]
     Active Substance: URAPIDIL
     Dosage: UNK
     Dates: start: 20170811, end: 20170813
  21. BISOCE [Concomitant]
     Active Substance: BISOPROLOL
     Dosage: UNK
     Dates: start: 20170813, end: 20170814
  22. ZYVOXID [Suspect]
     Active Substance: LINEZOLID
     Dosage: 600 MG, 2X/DAY
     Route: 042
     Dates: start: 20170818, end: 20170820
  23. INEXIUM /01479302/ [Concomitant]
     Active Substance: ESOMEPRAZOLE MAGNESIUM
     Dosage: UNK
     Dates: start: 20170803, end: 20170807
  24. BISOCE [Concomitant]
     Active Substance: BISOPROLOL
     Dosage: UNK
     Dates: start: 20170718, end: 20170722
  25. VANCOMYCINE [Concomitant]
     Active Substance: VANCOMYCIN
     Indication: PERITONITIS
     Dosage: 2.5 G, DAILY
     Route: 042
     Dates: start: 20170723, end: 20170729
  26. TRIFLUCAN [Concomitant]
     Active Substance: FLUCONAZOLE
     Dosage: UNK
     Route: 042
     Dates: start: 20170811, end: 20170812
  27. TRIFLUCAN [Concomitant]
     Active Substance: FLUCONAZOLE
     Indication: PERITONITIS
     Dosage: 400 MG, DAILY
     Route: 048
     Dates: start: 20170828, end: 20170831
  28. URAPIDIL [Concomitant]
     Active Substance: URAPIDIL
     Dosage: UNK
     Dates: start: 20170718, end: 20170722
  29. URAPIDIL [Concomitant]
     Active Substance: URAPIDIL
     Dosage: UNK
     Dates: start: 20170729, end: 20170807
  30. TIENAM [Suspect]
     Active Substance: CILASTATIN SODIUM\IMIPENEM
     Indication: PERITONITIS
     Dosage: UNK
     Route: 042
     Dates: start: 20170716, end: 20170719
  31. INEXIUM /01479302/ [Concomitant]
     Active Substance: ESOMEPRAZOLE MAGNESIUM
     Dosage: UNK
     Dates: start: 20170731, end: 20170731
  32. METRONIDAZOLE. [Concomitant]
     Active Substance: METRONIDAZOLE
     Indication: PERITONITIS
     Dosage: 500 MG, 3X/DAY
     Route: 042
     Dates: start: 20170716, end: 20170722
  33. TAZOCILLINE [Concomitant]
     Active Substance: PIPERACILLIN SODIUM\TAZOBACTAM SODIUM
     Dosage: UNK
     Dates: start: 20170723, end: 20170723
  34. TAZOCILLINE [Concomitant]
     Active Substance: PIPERACILLIN SODIUM\TAZOBACTAM SODIUM
     Dosage: UNK
     Dates: start: 20170808, end: 20170809
  35. MYCAMINE [Concomitant]
     Active Substance: MICAFUNGIN SODIUM
     Dosage: UNK
     Dates: start: 20170809, end: 20170811
  36. BISOCE [Concomitant]
     Active Substance: BISOPROLOL
     Dosage: UNK
     Dates: start: 20170727, end: 20170807

REACTIONS (6)
  - Hallucination [Unknown]
  - Pyrexia [Recovered/Resolved]
  - Confusional state [Unknown]
  - Eosinophilia [Recovered/Resolved]
  - Tremor [Recovered/Resolved]
  - Rash maculo-papular [Recovered/Resolved]

NARRATIVE: CASE EVENT DATE: 20170804
